FAERS Safety Report 4317311-0 (Version None)
Quarter: 2004Q1

REPORT INFORMATION
  Report Type: 
  Country: None (occurrence: None)
  Receive Date: 20040226
  Receipt Date: 20040211
  Transmission Date: 20041129
  Serious: No
  Sender: FDA-Public Use
  Company Number: 601106

PATIENT
  Age: 27 Year
  Sex: Female
  Weight: 58.0604 kg

DRUGS (1)
  1. TISSEEL VH KIT [Suspect]
     Indication: OBESITY SURGERY
     Dosage: 2 CC;ONCE;UNKNOWN
     Dates: start: 20040209, end: 20040209

REACTIONS (6)
  - ABDOMINAL HAEMATOMA [None]
  - ATELECTASIS [None]
  - LOBAR PNEUMONIA [None]
  - OEDEMA PERIPHERAL [None]
  - POST PROCEDURAL DISCHARGE [None]
  - WOUND SECRETION [None]
